FAERS Safety Report 10993451 (Version 1)
Quarter: 2015Q2

REPORT INFORMATION
  Report Type: Spontaneous
  Country: DE (occurrence: DE)
  Receive Date: 20150407
  Receipt Date: 20150407
  Transmission Date: 20150821
  Serious: Yes (Other)
  Sender: FDA-Public Use
  Company Number: DE-ACCORD-029780

PATIENT
  Age: 48 Year
  Sex: Male

DRUGS (5)
  1. BLEOMYCIN [Suspect]
     Active Substance: BLEOMYCIN SULFATE
     Indication: TESTICULAR SEMINOMA (PURE)
  2. ETOPOSIDE. [Suspect]
     Active Substance: ETOPOSIDE
     Indication: TESTICULAR SEMINOMA (PURE)
  3. PREDNISOLONE. [Concomitant]
     Active Substance: PREDNISOLONE
     Route: 048
  4. ENOXAPARIN [Concomitant]
     Active Substance: ENOXAPARIN
     Dosage: DRUG DOSE INCREASED TO 80 MG
  5. CISPLATIN. [Suspect]
     Active Substance: CISPLATIN
     Indication: TESTICULAR SEMINOMA (PURE)

REACTIONS (10)
  - Alopecia [Unknown]
  - Venous thrombosis [Unknown]
  - Renal impairment [Unknown]
  - Pneumonitis [Recovering/Resolving]
  - Aphasia [Recovered/Resolved]
  - Thalamic infarction [Unknown]
  - Splenic infarction [Unknown]
  - Anaemia [Unknown]
  - Abdominal pain upper [Unknown]
  - Hiccups [Unknown]
